FAERS Safety Report 6736680-5 (Version None)
Quarter: 2010Q2

REPORT INFORMATION
  Report Type: 
  Country: None (occurrence: None)
  Receive Date: 20100521
  Receipt Date: 20100510
  Transmission Date: 20101027
  Serious: Yes (Hospitalization)
  Sender: FDA-Public Use
  Company Number: PHHY2010IE16551

PATIENT
  Sex: Female

DRUGS (2)
  1. CLOZARIL [Suspect]
     Dosage: UNK
  2. ARIPIPRAZOLE [Concomitant]
     Dosage: 30 MG, QD
     Dates: end: 20100225

REACTIONS (1)
  - PSYCHOTIC DISORDER [None]
